FAERS Safety Report 7984031-0 (Version None)
Quarter: 2011Q4

REPORT INFORMATION
  Report Type: 
  Country: None (occurrence: None)
  Receive Date: 20111216
  Receipt Date: 20111207
  Transmission Date: 20120403
  Serious: Yes (Other)
  Sender: FDA-Public Use
  Company Number: AU-PFIZER INC-2011291201

PATIENT
  Age: 63 Year
  Sex: Female

DRUGS (6)
  1. METOPROLOL TARTRATE [Suspect]
     Indication: ESSENTIAL HYPERTENSION
  2. OMEPRAZOLE [Suspect]
     Dosage: 20 MG, 1X/DAY
     Route: 048
  3. NORVASC [Suspect]
     Indication: ESSENTIAL HYPERTENSION
     Dosage: 5 MG, 1X/DAY
     Route: 048
  4. CALCIUM CARBONATE [Suspect]
     Dosage: 600 MG, 1X/DAY
     Route: 048
  5. LEVOTHYROXINE SODIUM [Suspect]
     Dosage: 100 UG, 1X/DAY
     Route: 048
  6. FOSAMAX [Suspect]
     Indication: OSTEOPOROSIS
     Dosage: 70 MG, 1X/DAY
     Route: 048

REACTIONS (6)
  - OSTEOARTHRITIS [None]
  - TUBULOINTERSTITIAL NEPHRITIS [None]
  - HAEMOGLOBIN DECREASED [None]
  - WHITE BLOOD CELL COUNT INCREASED [None]
  - RENAL IMPAIRMENT [None]
  - ARTHRALGIA [None]
